FAERS Safety Report 6127283-4 (Version None)
Quarter: 2009Q1

REPORT INFORMATION
  Report Type: 
  Country: None (occurrence: None)
  Receive Date: 20090319
  Receipt Date: 20090305
  Transmission Date: 20090719
  Serious: Yes (Death)
  Sender: FDA-Public Use
  Company Number: 02100-JPN-07-0058

PATIENT
  Age: 53 Year
  Sex: Male

DRUGS (7)
  1. PLAVIX [Suspect]
     Indication: CEREBRAL INFARCTION
     Dosage: 75 MG, DAILY DOSE, ORAL
     Route: 048
     Dates: start: 20070118, end: 20070120
  2. ATORVASTATIN CALCIUM [Concomitant]
  3. SODIUM CHLORIDE [Concomitant]
  4. CITICOLINE (CITICOLINE) [Concomitant]
  5. MUCOSTA (REBAMIPIDE) TABLET [Concomitant]
  6. CILOSTAZOL [Concomitant]
  7. ASPIRIN [Concomitant]

REACTIONS (5)
  - BRAIN OEDEMA [None]
  - CEREBRAL HAEMORRHAGE [None]
  - CONVULSION [None]
  - DEPRESSED LEVEL OF CONSCIOUSNESS [None]
  - STUPOR [None]
